FAERS Safety Report 15825817 (Version 2)
Quarter: 2019Q1

REPORT INFORMATION
  Report Type: Spontaneous
  Country: JP (occurrence: JP)
  Receive Date: 20190115
  Receipt Date: 20190206
  Transmission Date: 20190417
  Serious: Yes (Other)
  Sender: FDA-Public Use
  Company Number: JP-GLAXOSMITHKLINE-JP2018JPN229406

PATIENT
  Age: 48 Year
  Sex: Female

DRUGS (7)
  1. LANSOPRAZOLE. [Concomitant]
     Active Substance: LANSOPRAZOLE
     Dosage: 15 MG, QD
  2. REQUIP [Suspect]
     Active Substance: ROPINIROLE HYDROCHLORIDE
     Dosage: 1 MG, TID
     Route: 048
  3. COMTAN [Concomitant]
     Active Substance: ENTACAPONE
     Dosage: 200 MG, FIVE TIMES A DAY
  4. MENESIT [Concomitant]
     Active Substance: CARBIDOPA\LEVODOPA
     Dosage: 50 MG, QID
  5. NEUPRO [Concomitant]
     Active Substance: ROTIGOTINE
     Dosage: 27 MG, QD
  6. REQUIP [Suspect]
     Active Substance: ROPINIROLE HYDROCHLORIDE
     Dosage: 1 MG, TID
     Route: 050
  7. MENESIT [Concomitant]
     Active Substance: CARBIDOPA\LEVODOPA
     Dosage: 100 MG, 1D

REACTIONS (3)
  - Parkinson^s disease [Unknown]
  - Product use issue [Unknown]
  - Dysphagia [Not Recovered/Not Resolved]

NARRATIVE: CASE EVENT DATE: 20181219
